FAERS Safety Report 8935792 (Version 1)
Quarter: 2012Q4

REPORT INFORMATION
  Report Type: Report from Study
  Country: DE (occurrence: DE)
  Receive Date: 20121130
  Receipt Date: 20121130
  Transmission Date: 20130627
  Serious: Yes (Hospitalization)
  Sender: FDA-Public Use
  Company Number: DE-BRISTOL-MYERS SQUIBB COMPANY-16431306

PATIENT
  Age: 57 Year
  Sex: Male
  Weight: 87 kg

DRUGS (7)
  1. ERBITUX SOLN FOR INF [Suspect]
     Indication: COLORECTAL CANCER METASTATIC
     Dosage: 27-Dec2011-unk:400mg/m2
Lastinf:20feb12,250mg/m2
02Jan12-04Jan12:250mg/m2(1/1week)153 days.
     Route: 042
     Dates: start: 20111227
  2. IRINOTECAN [Concomitant]
     Indication: COLORECTAL CANCER METASTATIC
     Route: 042
     Dates: start: 20111212
  3. 5-FLUOROURACIL [Concomitant]
     Indication: COLORECTAL CANCER METASTATIC
     Route: 042
     Dates: start: 20111212
  4. FOLINIC ACID [Concomitant]
     Indication: COLORECTAL CANCER METASTATIC
     Route: 042
     Dates: start: 20111212
  5. RANITIDINE [Concomitant]
     Indication: PREMEDICATION
     Dosage: 27Dec-27Dec11
02Jan-02Jan12
     Dates: start: 20111227
  6. ACETAMINOPHEN [Concomitant]
     Dosage: 27Dec2011-27dec2011
02Jan2012-02Jan2012
     Route: 048
     Dates: start: 20111227
  7. DICLOFENAC [Concomitant]
     Indication: PAIN
     Route: 048
     Dates: start: 20111212

REACTIONS (3)
  - Diarrhoea haemorrhagic [Recovered/Resolved]
  - Clostridial infection [Recovered/Resolved]
  - Nausea [Recovered/Resolved]
